FAERS Safety Report 13254313 (Version 2)
Quarter: 2017Q1

REPORT INFORMATION
  Report Type: Spontaneous
  Country: US (occurrence: US)
  Receive Date: 20170221
  Receipt Date: 20170224
  Transmission Date: 20170428
  Serious: No
  Sender: FDA-Public Use
  Company Number: US-ALEXION PHARMACEUTICALS INC.-A201701439

PATIENT
  Age: 1 Month
  Sex: Female

DRUGS (2)
  1. STRENSIQ [Suspect]
     Active Substance: ASFOTASE ALFA
     Dosage: 3 MG/KG, TIW (7.89MG)
     Route: 058
     Dates: start: 20170217
  2. STRENSIQ [Suspect]
     Active Substance: ASFOTASE ALFA
     Indication: HYPOPHOSPHATASIA
     Dosage: 2 MG/KG, TIW (4.56MG)
     Route: 058
     Dates: start: 20170201

REACTIONS (5)
  - Blood alkaline phosphatase decreased [Recovered/Resolved]
  - Incorrect route of drug administration [Recovered/Resolved]
  - Malaise [Not Recovered/Not Resolved]
  - Urine calcium increased [Not Recovered/Not Resolved]
  - Vomiting [Not Recovered/Not Resolved]

NARRATIVE: CASE EVENT DATE: 20170206
